FAERS Safety Report 9765846 (Version 3)
Quarter: 2014Q1

REPORT INFORMATION
  Report Type: Spontaneous
  Country: US (occurrence: US)
  Receive Date: 20131217
  Receipt Date: 20140326
  Transmission Date: 20141002
  Serious: No
  Sender: FDA-Public Use
  Company Number: US-BIOGENIDEC-2013BI114855

PATIENT
  Age: 64 Year
  Sex: Female
  Weight: 58 kg

DRUGS (12)
  1. TECFIDERA [Suspect]
     Indication: MULTIPLE SCLEROSIS
     Route: 048
     Dates: start: 20130920, end: 20130926
  2. TECFIDERA [Suspect]
     Indication: MULTIPLE SCLEROSIS
     Route: 048
     Dates: start: 20130927
  3. AMPYRA [Concomitant]
     Indication: GAIT DISTURBANCE
     Route: 048
     Dates: start: 20130919, end: 20130925
  4. AMPYRA [Concomitant]
     Indication: GAIT DISTURBANCE
     Route: 048
     Dates: start: 20130926
  5. LEVOTHYROXINE [Concomitant]
  6. XOPENEX [Concomitant]
  7. FORADIL [Concomitant]
  8. FLOVENT [Concomitant]
  9. TYLENOL [Concomitant]
  10. DIAZEPAM [Concomitant]
  11. CRANBERRY SUPPLEMENT [Concomitant]
  12. BETASERON [Concomitant]
     Dates: end: 20130918

REACTIONS (5)
  - Urinary tract infection [Recovered/Resolved]
  - Automatic bladder [Not Recovered/Not Resolved]
  - Pain in extremity [Not Recovered/Not Resolved]
  - Insomnia [Not Recovered/Not Resolved]
  - Constipation [Not Recovered/Not Resolved]
